FAERS Safety Report 20723853 (Version 1)
Quarter: 2022Q2

REPORT INFORMATION
  Report Type: Spontaneous
  Country: GB (occurrence: GB)
  Receive Date: 20220419
  Receipt Date: 20220419
  Transmission Date: 20220721
  Serious: Yes (Other)
  Sender: FDA-Public Use
  Company Number: GB-AMGEN-GBRSP2022063365

PATIENT
  Age: 38 Year
  Sex: Female
  Weight: 138 kg

DRUGS (1)
  1. NPLATE [Suspect]
     Active Substance: ROMIPLOSTIM
     Indication: Product used for unknown indication
     Dosage: 8 MICROGRAM/KILOGRAM
     Route: 065

REACTIONS (2)
  - Deep vein thrombosis [Unknown]
  - Platelet count decreased [Unknown]
